FAERS Safety Report 7469561-2 (Version None)
Quarter: 2011Q2

REPORT INFORMATION
  Report Type: 
  Country: None (occurrence: None)
  Receive Date: 20110510
  Receipt Date: 20110504
  Transmission Date: 20111010
  Serious: Yes (Other)
  Sender: FDA-Public Use
  Company Number: PHHY2011US37451

PATIENT
  Sex: Female

DRUGS (8)
  1. RECLAST [Suspect]
     Dosage: 5 MG, UNK
     Route: 042
  2. MEVACOR [Concomitant]
  3. SYNTHROID [Concomitant]
  4. VITAMIN D [Concomitant]
  5. RECLAST [Suspect]
     Dosage: 5 MG, UNK
     Route: 042
  6. ZEGERID [Concomitant]
  7. RECLAST [Suspect]
     Dosage: 5 MG, UNK
     Route: 042
  8. TOPAMAX [Concomitant]

REACTIONS (2)
  - FALL [None]
  - BRONCHITIS [None]
